FAERS Safety Report 17225703 (Version 1)
Quarter: 2019Q4

REPORT INFORMATION
  Report Type: Spontaneous
  Country: US (occurrence: US)
  Receive Date: 20191209
  Receipt Date: 20191209
  Transmission Date: 20200122
  Serious: Yes (Life-Threatening)
  Sender: FDA-Public Use
  Company Number: None

PATIENT
  Age: 28 Year
  Sex: Female
  Weight: 99 kg

DRUGS (3)
  1. ARIPIPRAZOLE (ARIPIPRAZOLE 20MG TAB) [Suspect]
     Active Substance: ARIPIPRAZOLE
     Indication: BIPOLAR I DISORDER
     Route: 048
     Dates: start: 20190820, end: 20190831
  2. ARIPIPRAZOLE (ARIPIPRAZOLE 20MG TAB) [Suspect]
     Active Substance: ARIPIPRAZOLE
     Indication: AFFECTIVE DISORDER
     Dosage: 05 TAB EVERY DAY PO
     Route: 048
     Dates: start: 20190820, end: 20190831
  3. ARIPIPRAZOLE (ARIPIPRAZOLE 20MG TAB) [Suspect]
     Active Substance: ARIPIPRAZOLE
     Indication: BIPOLAR DISORDER
     Dosage: 05 TAB EVERY DAY PO
     Route: 048
     Dates: start: 20190820, end: 20190831

REACTIONS (8)
  - Chills [None]
  - Serotonin syndrome [None]
  - Nausea [None]
  - Vision blurred [None]
  - Pain [None]
  - Headache [None]
  - Hypophagia [None]
  - Pyrexia [None]

NARRATIVE: CASE EVENT DATE: 20190901
